FAERS Safety Report 6493775-1 (Version None)
Quarter: 2009Q4

REPORT INFORMATION
  Report Type: 
  Country: None (occurrence: None)
  Receive Date: 20091214
  Receipt Date: 20081120
  Transmission Date: 20100525
  Serious: No
  Sender: FDA-Public Use
  Company Number: US-BRISTOL-MYERS SQUIBB COMPANY-14386635

PATIENT
  Age: 40 Year
  Sex: Female

DRUGS (1)
  1. ABILIFY [Suspect]
     Indication: BIPOLAR I DISORDER
     Dosage: RECEIVED FOR 2-3 MONTHS
     Route: 048
     Dates: start: 20080601

REACTIONS (3)
  - FATIGUE [None]
  - FEELING ABNORMAL [None]
  - SENSATION OF HEAVINESS [None]
